FAERS Safety Report 4330783-0 (Version None)
Quarter: 2004Q2

REPORT INFORMATION
  Report Type: 
  Country: None (occurrence: None)
  Receive Date: 20040401
  Receipt Date: 20040401
  Transmission Date: 20050107
  Serious: Yes (Hospitalization)
  Sender: FDA-Public Use
  Company Number: None

PATIENT
  Age: 47 Year
  Sex: Female
  Weight: 67.1324 kg

DRUGS (7)
  1. TAXOTERE [Suspect]
     Indication: BREAST CANCER
     Dosage: 109 MG Q 21 D IV
     Route: 042
     Dates: start: 20040324
  2. ADRIAMYCIN 200 MG /GENSIA SICON [Suspect]
     Indication: BREAST CANCER
     Dosage: 91 MG Q21D IV
     Route: 042
     Dates: start: 20040324
  3. SYNTHROID [Concomitant]
  4. MULTIVITIAMIN [Concomitant]
  5. COUMADIN [Concomitant]
  6. ASTELYN [Concomitant]
  7. DECADRON [Concomitant]

REACTIONS (4)
  - BLOOD PRESSURE DIASTOLIC DECREASED [None]
  - BODY TEMPERATURE INCREASED [None]
  - CHILLS [None]
  - FEELING COLD [None]
